FAERS Safety Report 24991236 (Version 1)
Quarter: 2025Q1

REPORT INFORMATION
  Report Type: Spontaneous
  Country: US (occurrence: US)
  Receive Date: 20250220
  Receipt Date: 20250220
  Transmission Date: 20250409
  Serious: Yes (Other)
  Sender: PFIZER
  Company Number: US-PFIZER INC-202500031356

PATIENT
  Age: 63 Year
  Sex: Female

DRUGS (4)
  1. IBRANCE [Suspect]
     Active Substance: PALBOCICLIB
     Indication: Neoplasm malignant
     Dates: start: 20200607, end: 20250123
  2. FASLODEX [Concomitant]
     Active Substance: FULVESTRANT
     Dates: end: 20250206
  3. PANTOPRAZOLE SODIUM [Concomitant]
     Active Substance: PANTOPRAZOLE SODIUM
  4. ACETAMINOPHEN\HYDROCODONE [Concomitant]
     Active Substance: ACETAMINOPHEN\HYDROCODONE

REACTIONS (14)
  - Cataract [Unknown]
  - Neoplasm progression [Unknown]
  - Influenza [Unknown]
  - Body temperature increased [Unknown]
  - Hyperhidrosis [Not Recovered/Not Resolved]
  - Back pain [Unknown]
  - Insomnia [Unknown]
  - Anxiety [Unknown]
  - Neuralgia [Unknown]
  - Pain in extremity [Unknown]
  - Musculoskeletal pain [Unknown]
  - Arthralgia [Unknown]
  - Neck pain [Recovered/Resolved]
  - Pain [Unknown]

NARRATIVE: CASE EVENT DATE: 20241201
